FAERS Safety Report 9233764 (Version 2)
Quarter: 2013Q3

REPORT INFORMATION
  Report Type: Spontaneous
  Country: GB (occurrence: GB)
  Receive Date: 20130416
  Receipt Date: 20130916
  Transmission Date: 20140515
  Serious: Yes (Hospitalization)
  Sender: FDA-Public Use
  Company Number: PHFR2013GB001799

PATIENT
  Age: 27 Year
  Sex: Female

DRUGS (4)
  1. CLOZARIL [Suspect]
     Indication: SCHIZOPHRENIA, PARANOID TYPE
     Dosage: UNK
     Route: 048
     Dates: start: 201211, end: 20121216
  2. CLOZARIL [Suspect]
     Dosage: 100 MG DAILY
     Route: 048
     Dates: start: 20130306, end: 20130314
  3. HALOPERIDOL [Concomitant]
     Indication: SCHIZOPHRENIA
     Dosage: 10 MG DAILY
     Route: 048
     Dates: start: 20130307, end: 20130325
  4. QUETIAPINE [Concomitant]
     Indication: SCHIZOPHRENIA
     Dosage: 600 MG DAILY
     Route: 048
     Dates: start: 20130319

REACTIONS (7)
  - Infection [Unknown]
  - Pneumonia [Recovered/Resolved]
  - Neutrophilia [Unknown]
  - Wheezing [Unknown]
  - Lower respiratory tract infection [Unknown]
  - Salivary hypersecretion [Not Recovered/Not Resolved]
  - Tachycardia [Not Recovered/Not Resolved]
